FAERS Safety Report 7265584-7 (Version None)
Quarter: 2011Q1

REPORT INFORMATION
  Report Type: 
  Country: None (occurrence: None)
  Receive Date: 20110120
  Receipt Date: 20110111
  Transmission Date: 20110831
  Serious: Yes (Life-Threatening, Hospitalization)
  Sender: FDA-Public Use
  Company Number: 2010SP001894

PATIENT
  Age: 45 Year
  Sex: Female
  Weight: 79.1 kg

DRUGS (16)
  1. IBUPROFEN [Concomitant]
  2. ZOLOFT [Concomitant]
  3. ALEVE [Concomitant]
  4. NAPROXEN [Concomitant]
  5. CICLESONIDE [Suspect]
     Indication: RHINITIS ALLERGIC
     Dosage: 160 UG; QD; NASAL
     Route: 045
     Dates: start: 20100414, end: 20100629
  6. AZITHROMYCIN [Concomitant]
  7. PREDNISONE [Concomitant]
  8. MUCINEX [Concomitant]
  9. OMEPRAZOLE [Concomitant]
  10. BENZONATATE [Concomitant]
  11. CLONAZEPAM [Concomitant]
  12. METFORMIN HCL [Concomitant]
  13. TYLENOL (CAPLET) [Concomitant]
  14. FLUCONAZOLE [Concomitant]
  15. AMOXICILLIN [Concomitant]
  16. PROMETHAZINE [Concomitant]

REACTIONS (11)
  - COUGH [None]
  - HEART RATE INCREASED [None]
  - PULMONARY OEDEMA [None]
  - CARDIAC FAILURE CONGESTIVE [None]
  - LETHARGY [None]
  - WHITE BLOOD CELL COUNT INCREASED [None]
  - LIVER FUNCTION TEST ABNORMAL [None]
  - ACUTE RESPIRATORY DISTRESS SYNDROME [None]
  - PNEUMONIA [None]
  - RESPIRATORY FAILURE [None]
  - CONFUSIONAL STATE [None]
